FAERS Safety Report 6153493-6 (Version None)
Quarter: 2009Q2

REPORT INFORMATION
  Report Type: 
  Country: None (occurrence: None)
  Receive Date: 20090413
  Receipt Date: 20090302
  Transmission Date: 20091009
  Serious: No
  Sender: FDA-Public Use
  Company Number: US-ABBOTT-09P-163-0560411-00

PATIENT
  Sex: Female

DRUGS (1)
  1. LUPRON [Suspect]
     Indication: IN VITRO FERTILISATION

REACTIONS (2)
  - BLOOD OESTROGEN INCREASED [None]
  - ILL-DEFINED DISORDER [None]
